FAERS Safety Report 8954590 (Version 2)
Quarter: 2012Q4

REPORT INFORMATION
  Report Type: 
  Country: JP (occurrence: JP)
  Receive Date: 20121210
  Receipt Date: 20121217
  Transmission Date: 20130627
  Serious: Yes (Other)
  Sender: FDA-Public Use
  Company Number: PHHY2012JP112648

PATIENT
  Age: 68 Year
  Sex: Male

DRUGS (2)
  1. ZOMETA [Suspect]
     Indication: METASTASES TO BONE
     Dosage: UNK UKN, UNK
     Route: 041
  2. ZOMETA [Suspect]
     Dosage: UNK UKN, UNK

REACTIONS (5)
  - Osteonecrosis of jaw [Unknown]
  - Periodontitis [Unknown]
  - Metastases to bone [Unknown]
  - Primary sequestrum [Unknown]
  - Swelling face [Unknown]
